FAERS Safety Report 8770357 (Version 4)
Quarter: 2012Q4

REPORT INFORMATION
  Report Type: Report from Study
  Country: FR (occurrence: FR)
  Receive Date: 20120906
  Receipt Date: 20121008
  Transmission Date: 20130627
  Serious: Yes (Death, Hospitalization)
  Sender: FDA-Public Use
  Company Number: FR-TEVA-356310USA

PATIENT
  Age: 77 Year
  Sex: Male
  Weight: 88 kg

DRUGS (10)
  1. TREANDA [Suspect]
     Indication: MANTLE CELL LYMPHOMA
     Dosage: 90 mg/m2 in day 1 and day 2.
     Route: 041
     Dates: start: 20120529
  2. MABTHERA [Suspect]
     Indication: MANTLE CELL LYMPHOMA
     Dosage: 375 mg/m2 daily
     Route: 041
     Dates: start: 20120529
  3. VELCADE [Suspect]
     Indication: MANTLE CELL LYMPHOMA
     Dosage: 1.3 mg/m2 daily
     Route: 058
     Dates: start: 20120529, end: 20120608
  4. DEXAMETHASONE [Suspect]
     Indication: MANTLE CELL LYMPHOMA
     Dosage: 40 mg, UID/QD Regimen #1
     Route: 041
     Dates: start: 20120530
  5. SEROPRAM [Concomitant]
  6. SERESTA [Concomitant]
  7. TRIATEC [Concomitant]
  8. GLUCOPHAGE [Concomitant]
  9. PREVISCAN [Concomitant]
  10. LASILIX [Concomitant]

REACTIONS (1)
  - Lung disorder [Fatal]
